FAERS Safety Report 6360509-0 (Version None)
Quarter: 2009Q3

REPORT INFORMATION
  Report Type: 
  Country: None (occurrence: None)
  Receive Date: 20090917
  Receipt Date: 20090903
  Transmission Date: 20100115
  Serious: Yes (Hospitalization)
  Sender: FDA-Public Use
  Company Number: KR-PFIZER INC-2009264153

PATIENT
  Age: 77 Year

DRUGS (3)
  1. BLINDED *NO SUBJECT DRUG [Suspect]
     Indication: CARDIAC FAILURE CONGESTIVE
     Dosage: BLINDED THERAPY
     Route: 048
     Dates: start: 20081027, end: 20090902
  2. BLINDED *PLACEBO [Suspect]
     Indication: CARDIAC FAILURE CONGESTIVE
     Dosage: BLINDED THERAPY
     Route: 048
     Dates: start: 20081027, end: 20090902
  3. BLINDED EPLERENONE [Suspect]
     Indication: CARDIAC FAILURE CONGESTIVE
     Dosage: BLINDED THERAPY
     Route: 048
     Dates: start: 20081027, end: 20090902

REACTIONS (1)
  - CEREBRAL INFARCTION [None]
